FAERS Safety Report 13123686 (Version 1)
Quarter: 2017Q1

REPORT INFORMATION
  Report Type: Not Available
  Country: None (occurrence: None)
  Receive Date: 20170117
  Receipt Date: 20170117
  Transmission Date: 20170428
  Serious: Yes (Other)
  Sender: FDA-Public Use
  Company Number: --2017-IR-000001

PATIENT
  Age: 23 Year
  Sex: Female

DRUGS (1)
  1. METRONIDAZOLE BRAND UNSPECIFIED (VIVIMED) [Suspect]
     Active Substance: METRONIDAZOLE
     Indication: BLASTOCYSTIS INFECTION
     Dosage: 750 MG 3 TIMES DAILY
     Route: 048

REACTIONS (4)
  - Deafness neurosensory [None]
  - Tinnitus [None]
  - Pain in extremity [Unknown]
  - Incorrect drug administration duration [None]
